FAERS Safety Report 24086225 (Version 2)
Quarter: 2025Q1

REPORT INFORMATION
  Report Type: Spontaneous
  Country: SE (occurrence: SE)
  Receive Date: 20240712
  Receipt Date: 20250314
  Transmission Date: 20250408
  Serious: Yes (Other)
  Sender: SAMSUNG BIOEPIS
  Company Number: None

PATIENT
  Age: 68 Year
  Sex: Female

DRUGS (10)
  1. INFLIXIMAB [Suspect]
     Active Substance: INFLIXIMAB
     Indication: Colitis ulcerative
     Route: 065
     Dates: start: 20231123, end: 20240319
  2. PENTASA [Concomitant]
     Active Substance: MESALAMINE
     Indication: Product used for unknown indication
     Dosage: DEPOT TABLET
     Dates: start: 20220117
  3. VAGIFEM [Concomitant]
     Active Substance: ESTRADIOL
     Indication: Product used for unknown indication
     Dates: start: 20190823
  4. CALCIUM CARBONATE\CHOLECALCIFEROL [Concomitant]
     Active Substance: CALCIUM CARBONATE\CHOLECALCIFEROL
     Indication: Product used for unknown indication
     Dosage: 500 MG/200 IE
     Dates: start: 20170413
  5. ELOCON [Concomitant]
     Active Substance: MOMETASONE FUROATE
     Indication: Product used for unknown indication
     Dates: start: 20210329
  6. PROPYDERM [PROPYLENE GLYCOL] [Concomitant]
     Indication: Product used for unknown indication
     Dates: start: 20210329
  7. DERMOVAT [BETAMETHASONE VALERATE] [Concomitant]
     Indication: Product used for unknown indication
     Dates: start: 20190823
  8. DERMOVAT [BETAMETHASONE VALERATE] [Concomitant]
     Route: 065
     Dates: start: 20230303
  9. ACLASTA [Concomitant]
     Active Substance: ZOLEDRONIC ACID
     Indication: Product used for unknown indication
     Dates: start: 20210322
  10. PREDNISOLONE [Concomitant]
     Active Substance: PREDNISOLONE
     Indication: Product used for unknown indication
     Dates: start: 20240108, end: 20240204

REACTIONS (6)
  - Skin wound [Unknown]
  - Rash pruritic [Unknown]
  - Frequent bowel movements [Unknown]
  - Pain in extremity [Unknown]
  - Haematochezia [Unknown]
  - Drug ineffective [Unknown]

NARRATIVE: CASE EVENT DATE: 20240101
